FAERS Safety Report 5036215-1 (Version None)
Quarter: 2006Q2

REPORT INFORMATION
  Report Type: 
  Country: None (occurrence: None)
  Receive Date: 20060531
  Receipt Date: 20050902
  Transmission Date: 20061013
  Serious: Yes (Other)
  Sender: FDA-Public Use
  Company Number: 2005VX000516

PATIENT
  Age: 55 Year
  Sex: Male

DRUGS (10)
  1. PERMAX [Suspect]
     Indication: PARKINSON'S DISEASE
     Dosage: 1.5 MG;QD
     Dates: start: 19890801, end: 20000101
  2. BROMOCRIPTINE MESYLATE [Concomitant]
  3. AMANTADINE HCL [Concomitant]
  4. LEVODOPA [Concomitant]
  5. CARBIDOPA [Concomitant]
  6. LISINOPRIL [Concomitant]
  7. SPIRONOLACTONE [Concomitant]
  8. FUROSEMIDE [Concomitant]
  9. ACETYLSALICYLIC ACID SRT [Concomitant]
  10. TOLTERODINE TARTRATE [Concomitant]

REACTIONS (3)
  - PARKINSONISM [None]
  - PLEURAL EFFUSION [None]
  - PULMONARY FIBROSIS [None]
